FAERS Safety Report 10070506 (Version 1)
Quarter: 2014Q2

REPORT INFORMATION
  Report Type: Spontaneous
  Country: PT (occurrence: None)
  Receive Date: 20140408
  Receipt Date: 20140408
  Transmission Date: 20141212
  Serious: Yes (Hospitalization)
  Sender: FDA-Public Use
  Company Number: 2014AP002418

PATIENT
  Age: 63 Year
  Sex: Female

DRUGS (3)
  1. ALENDRONIC ACID (ALENDRONIC ACID) [Suspect]
  2. LEVOTHYROXINE SODIUM [Concomitant]
  3. VITAMIN D NOS [Concomitant]

REACTIONS (2)
  - Atypical femur fracture [None]
  - Fall [None]
